FAERS Safety Report 15619682 (Version 1)
Quarter: 2018Q4

REPORT INFORMATION
  Report Type: Spontaneous
  Country: US (occurrence: US)
  Receive Date: 20181115
  Receipt Date: 20181115
  Transmission Date: 20190205
  Serious: No
  Sender: FDA-Public Use
  Company Number: US-LUPIN PHARMACEUTICALS INC.-2018-06006

PATIENT
  Sex: Female

DRUGS (1)
  1. MY WAY [Suspect]
     Active Substance: LEVONORGESTREL
     Indication: POLYMENORRHOEA
     Dosage: 1 DF, SINGLE
     Route: 065
     Dates: start: 20180807

REACTIONS (2)
  - No adverse event [Unknown]
  - Product use in unapproved indication [Unknown]
